FAERS Safety Report 16706158 (Version 1)
Quarter: 2019Q4

REPORT INFORMATION
  Report Type: Spontaneous
  Country: US (occurrence: US)
  Receive Date: 20190814
  Receipt Date: 20190814
  Transmission Date: 20200122
  Serious: No
  Sender: FDA-Public Use
  Company Number: None

PATIENT
  Age: 61 Year
  Sex: Female
  Weight: 105.3 kg

DRUGS (6)
  1. NORVASC [Concomitant]
     Active Substance: AMLODIPINE BESYLATE
  2. CURCUMIN [Concomitant]
     Active Substance: CURCUMIN
  3. ZYRTEC [Concomitant]
     Active Substance: CETIRIZINE HYDROCHLORIDE
  4. MEDIUM 40MG [Concomitant]
  5. TUMERIC [Concomitant]
     Active Substance: HERBALS\TURMERIC
  6. MONSELS SOLUTION [Suspect]
     Active Substance: FERRIC SUBSULFATE
     Indication: ANTICOAGULANT THERAPY
     Dosage: ?          OTHER FREQUENCY:USED ONE TIME;?
     Route: 061
     Dates: start: 20190708, end: 20190708

REACTIONS (5)
  - Burn infection [None]
  - Chemical burn [None]
  - Pain [None]
  - Application site burn [None]
  - Impaired healing [None]

NARRATIVE: CASE EVENT DATE: 20190708
